FAERS Safety Report 10420351 (Version 2)
Quarter: 2014Q4

REPORT INFORMATION
  Report Type: Report from Study
  Country: GB (occurrence: None)
  Receive Date: 20140812
  Receipt Date: 20141024
  Transmission Date: 20150528
  Serious: Yes (Other)
  Sender: FDA-Public Use
  Company Number: BTG00129

PATIENT
  Age: 91 Year
  Sex: Female

DRUGS (3)
  1. DIGIFAB [Suspect]
     Active Substance: OVINE DIGOXIN IMMUNE FAB
     Dosage: 2 VIALS
     Dates: start: 20140731
  2. DIGOXIN (DIGOXIN) [Suspect]
     Active Substance: DIGOXIN
     Indication: PRODUCT USED FOR UNKNOWN INDICATION
     Dosage: 62.5 UG,QD.
  3. DIGIFAB [Suspect]
     Active Substance: OVINE DIGOXIN IMMUNE FAB
     Indication: TOXICITY TO VARIOUS AGENTS
     Dosage: 2 VIALS
     Dates: start: 20140731

REACTIONS (6)
  - Drug ineffective [None]
  - Bradycardia [None]
  - Visual impairment [None]
  - Mental status changes [None]
  - Toxicity to various agents [None]
  - Drug effect incomplete [None]

NARRATIVE: CASE EVENT DATE: 20140731
